FAERS Safety Report 9547992 (Version 3)
Quarter: 2014Q2

REPORT INFORMATION
  Report Type: Spontaneous
  Country: US (occurrence: US)
  Receive Date: 20130924
  Receipt Date: 20140522
  Transmission Date: 20141215
  Serious: Yes (Life-Threatening)
  Sender: FDA-Public Use
  Company Number: US-SANOFI-AVENTIS-2013SA072259

PATIENT
  Age: 61 Year
  Sex: Male
  Weight: 97.06 kg

DRUGS (10)
  1. LANTUS SOLOSTAR [Suspect]
     Indication: TYPE 2 DIABETES MELLITUS
     Route: 051
     Dates: start: 201301
  2. LANTUS SOLOSTAR [Suspect]
     Indication: TYPE 2 DIABETES MELLITUS
     Route: 051
     Dates: start: 201301
  3. LANTUS SOLOSTAR [Suspect]
     Indication: TYPE 2 DIABETES MELLITUS
     Dosage: DOSE:38 UNIT(S)
     Route: 051
  4. SOLOSTAR [Concomitant]
     Indication: TYPE 2 DIABETES MELLITUS
     Dates: start: 201301
  5. SOLOSTAR [Concomitant]
     Indication: TYPE 2 DIABETES MELLITUS
     Dates: start: 201301
  6. SOLOSTAR [Concomitant]
     Indication: TYPE 2 DIABETES MELLITUS
  7. JANUVIA [Concomitant]
     Indication: DIABETES MELLITUS
     Dates: start: 201010
  8. METFORMIN [Concomitant]
     Indication: DIABETES MELLITUS
     Dates: start: 201010
  9. ZANTAC [Concomitant]
     Indication: GASTRIC DISORDER
     Dates: start: 2008
  10. ASPIRIN [Concomitant]
     Dates: start: 1997

REACTIONS (9)
  - Blood glucose fluctuation [Recovered/Resolved]
  - Drug administration error [Unknown]
  - Dizziness [Unknown]
  - Feeling abnormal [Unknown]
  - Blood glucose increased [Recovered/Resolved]
  - Incorrect product storage [Unknown]
  - Blood glucose decreased [Unknown]
  - Injection site haemorrhage [Unknown]
  - Injection site pain [Unknown]
